FAERS Safety Report 11300730 (Version 1)
Quarter: 2015Q3

REPORT INFORMATION
  Report Type: Spontaneous
  Country: US (occurrence: US)
  Receive Date: 20150722
  Receipt Date: 20150722
  Transmission Date: 20151125
  Serious: No
  Sender: FDA-Public Use
  Company Number: US-ELI_LILLY_AND_COMPANY-US201208000316

PATIENT
  Sex: Male
  Weight: 45.1 kg

DRUGS (1)
  1. HUMATROPE [Suspect]
     Active Substance: SOMATROPIN
     Dosage: 3.4 MG, QD
     Route: 058

REACTIONS (2)
  - Crohn^s disease [Unknown]
  - Coeliac disease [Unknown]
